FAERS Safety Report 20656076 (Version 1)
Quarter: 2022Q1

REPORT INFORMATION
  Report Type: Report from Study
  Country: US (occurrence: US)
  Receive Date: 20220330
  Receipt Date: 20220330
  Transmission Date: 20220423
  Serious: Yes (Other)
  Sender: FDA-Public Use
  Company Number: US-ABBVIE-22K-163-4337271-00

PATIENT
  Sex: Female

DRUGS (2)
  1. IMBRUVICA [Suspect]
     Active Substance: IBRUTINIB
     Indication: Chronic lymphocytic leukaemia
     Route: 048
     Dates: start: 201612
  2. IMBRUVICA [Suspect]
     Active Substance: IBRUTINIB
     Route: 048

REACTIONS (8)
  - Limb operation [Unknown]
  - Carpal tunnel syndrome [Unknown]
  - Hair texture abnormal [Unknown]
  - Skin discolouration [Unknown]
  - Blood alkaline phosphatase increased [Unknown]
  - Nail discolouration [Unknown]
  - Onycholysis [Unknown]
  - Pruritus [Unknown]
